FAERS Safety Report 15920530 (Version 3)
Quarter: 2019Q3

REPORT INFORMATION
  Report Type: Spontaneous
  Country: US (occurrence: US)
  Receive Date: 20190205
  Receipt Date: 20190730
  Transmission Date: 20191004
  Serious: Yes (Other)
  Sender: FDA-Public Use
  Company Number: US-PFIZER INC-2019050623

PATIENT
  Age: 36 Year
  Sex: Female
  Weight: 61 kg

DRUGS (3)
  1. ACETYLCARNITINE [Concomitant]
     Active Substance: ACETYLCARNITINE
     Indication: AFFECTIVE DISORDER
     Dosage: 800 MG, 2X/DAY
  2. IBUPROFEN. [Concomitant]
     Active Substance: IBUPROFEN
     Dosage: 200 MG, UNK [200MG A COUPLE TIMES A DAY]
     Dates: start: 20190127
  3. DEPO-PROVERA [Suspect]
     Active Substance: MEDROXYPROGESTERONE ACETATE
     Indication: PREMENSTRUAL DYSPHORIC DISORDER
     Dosage: UNK
     Dates: start: 201812, end: 201812

REACTIONS (10)
  - Product use in unapproved indication [Unknown]
  - Irritability [Not Recovered/Not Resolved]
  - Screaming [Unknown]
  - Depression [Not Recovered/Not Resolved]
  - Anger [Not Recovered/Not Resolved]
  - Crying [Recovering/Resolving]
  - Haemorrhage [Recovered/Resolved]
  - Middle insomnia [Unknown]
  - Condition aggravated [Not Recovered/Not Resolved]
  - Abnormal behaviour [Recovering/Resolving]

NARRATIVE: CASE EVENT DATE: 201812
